FAERS Safety Report 9327137 (Version 1)
Quarter: 2013Q2

REPORT INFORMATION
  Report Type: Spontaneous
  Country: US (occurrence: US)
  Receive Date: 20130604
  Receipt Date: 20130604
  Transmission Date: 20140414
  Serious: No
  Sender: FDA-Public Use
  Company Number: US-AMGEN-USASP2013033087

PATIENT
  Age: 61 Year
  Sex: Female

DRUGS (2)
  1. ENBREL [Suspect]
     Indication: RHEUMATOID ARTHRITIS
     Dosage: 50 MG, QWK
     Dates: start: 20000601
  2. ACE INHIBITORS [Concomitant]
     Dosage: UNK

REACTIONS (13)
  - Pelvic pain [Not Recovered/Not Resolved]
  - Headache [Recovered/Resolved]
  - Local swelling [Recovered/Resolved]
  - Erythema [Recovered/Resolved]
  - Throat irritation [Recovered/Resolved]
  - Nightmare [Recovered/Resolved]
  - Arthralgia [Recovered/Resolved]
  - Cough [Recovered/Resolved]
  - Feeling abnormal [Not Recovered/Not Resolved]
  - Stress [Not Recovered/Not Resolved]
  - Pain [Not Recovered/Not Resolved]
  - Oropharyngeal pain [Not Recovered/Not Resolved]
  - Upper respiratory tract infection [Recovered/Resolved]
